FAERS Safety Report 8589412-2 (Version None)
Quarter: 2012Q3

REPORT INFORMATION
  Report Type: 
  Country: None (occurrence: None)
  Receive Date: 20120813
  Receipt Date: 20120802
  Transmission Date: 20120928
  Serious: Yes (Hospitalization, Disabling, Other)
  Sender: FDA-Public Use
  Company Number: JP-SANOFI-AVENTIS-2012SA052285

PATIENT
  Age: 66 Year
  Sex: Male
  Weight: 66 kg

DRUGS (3)
  1. DEXAMETHASONE [Concomitant]
     Route: 048
     Dates: start: 20110119, end: 20110811
  2. ESTRACYT [Concomitant]
     Route: 048
     Dates: start: 20110119, end: 20110213
  3. TAXOTERE [Suspect]
     Indication: PROSTATE CANCER
     Dosage: DOSE: 40 MG/BODY
     Route: 042
     Dates: start: 20110119, end: 20120721

REACTIONS (7)
  - SEPTIC SHOCK [None]
  - OPTIC NEURITIS [None]
  - BLINDNESS UNILATERAL [None]
  - VISUAL FIELD DEFECT [None]
  - OPTIC ISCHAEMIC NEUROPATHY [None]
  - VISUAL ACUITY REDUCED [None]
  - PNEUMONIA PNEUMOCOCCAL [None]
